FAERS Safety Report 23150256 (Version 1)
Quarter: 2023Q4

REPORT INFORMATION
  Report Type: Spontaneous
  Country: US (occurrence: US)
  Receive Date: 20231106
  Receipt Date: 20231106
  Transmission Date: 20240110
  Serious: No
  Sender: FDA-Public Use
  Company Number: US-Calliditas-2023CAL01392

PATIENT
  Age: 57 Year
  Sex: Female

DRUGS (1)
  1. TARPEYO [Suspect]
     Active Substance: BUDESONIDE
     Indication: IgA nephropathy
     Dosage: 16MG (4MG CAPSULES) ONCE DAILY
     Route: 050
     Dates: start: 20231006

REACTIONS (3)
  - Dysphonia [Unknown]
  - Blood pressure decreased [Unknown]
  - Dizziness [Unknown]
